FAERS Safety Report 6647066-6 (Version None)
Quarter: 2010Q1

REPORT INFORMATION
  Report Type: 
  Country: None (occurrence: None)
  Receive Date: 20100323
  Receipt Date: 20100309
  Transmission Date: 20100710
  Serious: Yes (Other)
  Sender: FDA-Public Use
  Company Number: PHHY2010US14460

PATIENT
  Sex: Female

DRUGS (6)
  1. AFINITOR [Suspect]
     Indication: CORONARY ARTERY OCCLUSION
     Dosage: UNK
     Dates: start: 20091101
  2. PROMUS STENT IMPLANTATION [Suspect]
     Dosage: UNK
     Dates: start: 20091101
  3. ATENOLOL [Suspect]
     Dosage: 12.5 MG, UNK
     Route: 048
  4. PLAVIX [Concomitant]
     Dosage: 75 MG, UNK
     Route: 048
  5. ASPIRIN [Concomitant]
     Dosage: 325 MG, UNK
     Route: 048
  6. CRESTOR [Concomitant]
     Indication: BLOOD CHOLESTEROL INCREASED
     Dosage: 10 MG, UNK
     Route: 048

REACTIONS (4)
  - ARRHYTHMIA [None]
  - HEART RATE DECREASED [None]
  - HYPERSENSITIVITY [None]
  - RASH [None]
